FAERS Safety Report 6204281-3 (Version None)
Quarter: 2009Q2

REPORT INFORMATION
  Report Type: 
  Country: None (occurrence: None)
  Receive Date: 20090527
  Receipt Date: 20090515
  Transmission Date: 20091009
  Serious: Yes (Other)
  Sender: FDA-Public Use
  Company Number: US-PFIZER INC-2007077472

PATIENT
  Sex: Female
  Weight: 74.83 kg

DRUGS (18)
  1. CHANTIX [Suspect]
     Indication: SMOKING CESSATION THERAPY
     Dosage: 0.5 MG, 2X/DAY
     Route: 048
     Dates: start: 20070701
  2. LIPITOR [Concomitant]
     Indication: BLOOD CHOLESTEROL INCREASED
     Dosage: UNK
  3. LYRICA [Concomitant]
     Dosage: UNK
  4. LEXAPRO [Concomitant]
     Indication: DEPRESSION
     Dosage: 20 MG, UNK
  5. MULTIPLE VITAMIN [Concomitant]
     Dosage: UNK
  6. SULFATRIM [Concomitant]
     Dosage: UNK
  7. CYSTOSPAZ [Concomitant]
     Dosage: AS NEEDED
  8. CARISOPRODOL [Concomitant]
     Dosage: UNK
  9. DEPO-MEDROL [Concomitant]
     Dosage: UNK
  10. FISH OIL [Concomitant]
     Dosage: UNK
  11. CALCIUM [Concomitant]
     Dosage: UNK
  12. SULFADINE [Concomitant]
     Dosage: UNK
  13. VACCINIUM MACROCARPON [Concomitant]
     Dosage: UNK
  14. FIORINAL [Concomitant]
     Indication: HEADACHE
     Dosage: UNK
  15. DARVOCET [Concomitant]
     Dosage: UNK
  16. DARVON [Concomitant]
     Dosage: UNK
  17. COPAXONE [Concomitant]
     Indication: MULTIPLE SCLEROSIS
     Dosage: UNK
     Route: 030
  18. SULFATRIM-DS [Concomitant]
     Dosage: UNK

REACTIONS (9)
  - HEADACHE [None]
  - MALAISE [None]
  - NAUSEA [None]
  - NERVOUSNESS [None]
  - PAIN [None]
  - ROTATOR CUFF REPAIR [None]
  - SURGERY [None]
  - VOMITING [None]
  - WEIGHT INCREASED [None]
